FAERS Safety Report 10873371 (Version 2)
Quarter: 2016Q2

REPORT INFORMATION
  Report Type: Spontaneous
  Country: US (occurrence: US)
  Receive Date: 20150227
  Receipt Date: 20160412
  Transmission Date: 20160815
  Serious: Yes (Life-Threatening, Hospitalization, Other)
  Sender: FDA-Public Use
  Company Number: US-AUROBINDO-AUR-APL-2015-01565

PATIENT
  Age: 86 Year
  Sex: Female

DRUGS (1)
  1. ALENDRONATE SODIUM TABLETS [Suspect]
     Active Substance: ALENDRONATE SODIUM
     Indication: OSTEOPOROSIS
     Dosage: UNK
     Route: 048

REACTIONS (10)
  - Venous pressure jugular increased [Unknown]
  - Disorientation [Unknown]
  - Condition aggravated [Unknown]
  - Disturbance in social behaviour [Unknown]
  - Drug administration error [Unknown]
  - Dehydration [Unknown]
  - Stomatitis [Unknown]
  - Hypertensive emergency [Recovered/Resolved]
  - Oesophageal motility disorder [Unknown]
  - Delirium [Unknown]
